FAERS Safety Report 4471380-6 (Version None)
Quarter: 2004Q4

REPORT INFORMATION
  Report Type: 
  Country: None (occurrence: None)
  Receive Date: 20041006
  Receipt Date: 20040503
  Transmission Date: 20050328
  Serious: Yes (Hospitalization)
  Sender: FDA-Public Use
  Company Number: 208108

PATIENT
  Age: 39 Year
  Sex: Female
  Weight: 100 kg

DRUGS (4)
  1. OMALIZUMAB (OMALIZUMAB) PWDR 7 SOLVENT,INJECTION SOLN, 150MG [Suspect]
     Indication: ASTHMA
     Dates: start: 20030314, end: 20030815
  2. SALMETEROL (SALMETEROL) [Concomitant]
  3. SALBUTAMOL (ALBUTEROL SULFATE) [Concomitant]
  4. TEMAZEPAM [Concomitant]

REACTIONS (7)
  - ARTHRITIS [None]
  - ERYTHEMA [None]
  - FATIGUE [None]
  - JOINT SWELLING [None]
  - MALAISE [None]
  - SARCOIDOSIS [None]
  - SKIN LESION [None]
